FAERS Safety Report 15230338 (Version 8)
Quarter: 2021Q1

REPORT INFORMATION
  Report Type: Report from Study
  Country: US (occurrence: US)
  Receive Date: 20180802
  Receipt Date: 20210315
  Transmission Date: 20210419
  Serious: Yes (Other)
  Sender: FDA-Public Use
  Company Number: US-EMD SERONO-E2B_80090844

PATIENT
  Age: 58 Year
  Sex: Female

DRUGS (3)
  1. REBIF [Suspect]
     Active Substance: INTERFERON BETA-1A
     Route: 058
     Dates: start: 2014
  2. REBIF [Suspect]
     Active Substance: INTERFERON BETA-1A
     Indication: MULTIPLE SCLEROSIS
     Route: 058
     Dates: start: 20070125, end: 2014
  3. REBIF [Suspect]
     Active Substance: INTERFERON BETA-1A
     Route: 058
     Dates: start: 201711

REACTIONS (16)
  - Decreased immune responsiveness [Unknown]
  - Chest discomfort [Unknown]
  - Inappropriate schedule of product administration [Unknown]
  - Uhthoff^s phenomenon [Unknown]
  - Nasopharyngitis [Unknown]
  - Hypersomnia [Unknown]
  - Anxiety [Unknown]
  - White blood cell count decreased [Recovering/Resolving]
  - Balance disorder [Not Recovered/Not Resolved]
  - Retinal detachment [Recovering/Resolving]
  - Oral herpes [Unknown]
  - Loss of consciousness [Recovered/Resolved]
  - Injection site pain [Unknown]
  - Injection site mass [Unknown]
  - Vein disorder [Unknown]
  - Injection site bruising [Unknown]

NARRATIVE: CASE EVENT DATE: 2008
